FAERS Safety Report 19178613 (Version 1)
Quarter: 2021Q2

REPORT INFORMATION
  Report Type: Spontaneous
  Country: US (occurrence: US)
  Receive Date: 20210426
  Receipt Date: 20210426
  Transmission Date: 20210717
  Serious: Yes (Hospitalization, Other)
  Sender: FDA-Public Use
  Company Number: US-ASTELLAS-2021US014686

PATIENT
  Sex: Male

DRUGS (1)
  1. GILTERITINIB [Suspect]
     Active Substance: GILTERITINIB
     Indication: ACUTE MYELOID LEUKAEMIA
     Dosage: UNK, UNKNOWN FREQ.(STARTED ON LOWER DOSE OF GILTERITINIB)
     Route: 065

REACTIONS (3)
  - Pleural effusion [Unknown]
  - Underdose [Unknown]
  - Electrocardiogram QT interval abnormal [Unknown]
